FAERS Safety Report 26081803 (Version 1)
Quarter: 2025Q4

REPORT INFORMATION
  Report Type: Spontaneous
  Country: US (occurrence: US)
  Receive Date: 20251124
  Receipt Date: 20251124
  Transmission Date: 20260118
  Serious: No
  Sender: SANDOZ
  Company Number: US-SANDOZ-SDZ2025US087509

PATIENT
  Sex: Female
  Weight: 79.36 kg

DRUGS (1)
  1. COMBIPATCH [Suspect]
     Active Substance: ESTRADIOL\NORETHINDRONE ACETATE
     Indication: Menopause
     Dosage: 0.05/0.14 MG
     Route: 062
     Dates: start: 2025, end: 20251114

REACTIONS (10)
  - Postmenopausal haemorrhage [Not Recovered/Not Resolved]
  - Uterine spasm [Not Recovered/Not Resolved]
  - Application site pruritus [Not Recovered/Not Resolved]
  - Application site erythema [Not Recovered/Not Resolved]
  - Application site swelling [Not Recovered/Not Resolved]
  - Application site rash [Not Recovered/Not Resolved]
  - Product dose omission issue [Not Recovered/Not Resolved]
  - Product adhesion issue [Recovered/Resolved]
  - Device issue [Recovered/Resolved]
  - Product colour issue [Recovered/Resolved]

NARRATIVE: CASE EVENT DATE: 20250101
